FAERS Safety Report 4889321-6 (Version None)
Quarter: 2006Q1

REPORT INFORMATION
  Report Type: 
  Country: None (occurrence: None)
  Receive Date: 20060120
  Receipt Date: 20060110
  Transmission Date: 20060701
  Serious: No
  Sender: FDA-Public Use
  Company Number: 2005BI013870

PATIENT
  Age: 53 Year
  Sex: Female

DRUGS (3)
  1. AVONEX [Suspect]
     Indication: MULTIPLE SCLEROSIS
     Dosage: SEE IMAGE
     Route: 030
     Dates: start: 19980101, end: 20050401
  2. AVONEX [Suspect]
     Indication: MULTIPLE SCLEROSIS
     Dosage: SEE IMAGE
     Route: 030
     Dates: start: 20050401, end: 20050501
  3. ZESTRIL [Concomitant]

REACTIONS (10)
  - ANOREXIA [None]
  - DIARRHOEA [None]
  - FACE OEDEMA [None]
  - GENERAL PHYSICAL CONDITION ABNORMAL [None]
  - HEADACHE [None]
  - HYPERSENSITIVITY [None]
  - INJECTION SITE OEDEMA [None]
  - PYREXIA [None]
  - SYNCOPE [None]
  - VOMITING [None]
